FAERS Safety Report 8861941 (Version 2)
Quarter: 2012Q4

REPORT INFORMATION
  Report Type: Report from Study
  Country: SE (occurrence: SE)
  Receive Date: 20121025
  Receipt Date: 20121101
  Transmission Date: 20130627
  Serious: Yes (Death, Hospitalization)
  Sender: FDA-Public Use
  Company Number: SE-SANOFI-AVENTIS-2012SA077637

PATIENT
  Age: 65 Year
  Sex: Male

DRUGS (12)
  1. ENOXAPARIN SODIUM [Suspect]
     Indication: SMALL CELL LUNG CANCER
     Route: 058
     Dates: start: 20120725, end: 20120905
  2. ENOXAPARIN SODIUM [Suspect]
     Indication: SMALL CELL LUNG CANCER
     Route: 058
     Dates: end: 20121007
  3. CARBOPLATIN [Suspect]
     Indication: SMALL CELL LUNG CANCER
     Route: 065
     Dates: start: 20120724, end: 20120905
  4. CARBOPLATIN [Suspect]
     Indication: SMALL CELL LUNG CANCER
     Route: 065
     Dates: end: 20121007
  5. ETOPOSIDE [Suspect]
     Indication: SMALL CELL LUNG CANCER
     Route: 065
     Dates: start: 20120724, end: 20120905
  6. ETOPOSIDE [Suspect]
     Indication: SMALL CELL LUNG CANCER
     Route: 065
     Dates: end: 20121007
  7. BETAMETHASONE [Concomitant]
  8. ESOMEPRAZOLE [Concomitant]
  9. VALACICLOVIR [Concomitant]
  10. DICLOFENAC [Concomitant]
  11. ACETYLCYSTEINE [Concomitant]
  12. MEROPENEM [Concomitant]

REACTIONS (8)
  - Febrile neutropenia [Fatal]
  - Dysphagia [Fatal]
  - Oesophageal fistula [Fatal]
  - Lung abscess [Fatal]
  - Pulmonary haemorrhage [Fatal]
  - Nausea [Unknown]
  - Vomiting [Unknown]
  - Diarrhoea [Unknown]
